FAERS Safety Report 4886820-8 (Version None)
Quarter: 2006Q1

REPORT INFORMATION
  Report Type: 
  Country: None (occurrence: None)
  Receive Date: 20060119
  Receipt Date: 20060119
  Transmission Date: 20060701
  Serious: No
  Sender: FDA-Public Use
  Company Number: None

PATIENT
  Age: 58 Year
  Sex: Female
  Weight: 56 kg

DRUGS (6)
  1. LICE ARREST (COPYRIGHT AS NOT NICE TO LICE) GENESIS [Suspect]
     Indication: LICE INFESTATION
     Dosage: TOPICAL APPLICATION
     Route: 061
     Dates: start: 20051008
  2. ALBUTEROL [Concomitant]
  3. ALENDRONATE SODIUM [Concomitant]
  4. ASCORBIC ACID [Concomitant]
  5. FOLIC ACID [Concomitant]
  6. VITAMIN CAP [Concomitant]

REACTIONS (5)
  - ACCIDENTAL EXPOSURE [None]
  - CORNEAL EROSION [None]
  - PHARMACEUTICAL PRODUCT COMPLAINT [None]
  - VIRAL INFECTION [None]
  - VISION BLURRED [None]
